FAERS Safety Report 5265664-1 (Version None)
Quarter: 2007Q1

REPORT INFORMATION
  Report Type: 
  Country: None (occurrence: None)
  Receive Date: 20061213
  Receipt Date: 20051004
  Transmission Date: 20070707
  Serious: Yes (Other)
  Sender: FDA-Public Use
  Company Number: 2005UW01777

PATIENT
  Age: 83 Year
  Sex: Male
  Weight: 71.667 kg

DRUGS (7)
  1. IRESSA [Suspect]
     Indication: LUNG NEOPLASM MALIGNANT
     Dates: start: 20030101
  2. LIPITOR [Suspect]
  3. COUMADIN [Concomitant]
  4. AMIODARONE HCL [Concomitant]
  5. ALTACE [Concomitant]
  6. ASPIRIN [Concomitant]
  7. SYNTHROID [Concomitant]

REACTIONS (6)
  - CONJUNCTIVITIS [None]
  - DERMATITIS ACNEIFORM [None]
  - DRY SKIN [None]
  - ECCHYMOSIS [None]
  - HANGNAIL [None]
  - SKIN ULCER [None]
